FAERS Safety Report 17192501 (Version 1)
Quarter: 2019Q4

REPORT INFORMATION
  Report Type: Spontaneous
  Country: US (occurrence: US)
  Receive Date: 20191223
  Receipt Date: 20191223
  Transmission Date: 20200122
  Serious: Yes (Hospitalization)
  Sender: FDA-Public Use
  Company Number: US-FRESENIUS MEDICAL CARE RENAL THERAPIES GROUP-FMC-1912-001574

PATIENT
  Sex: Female
  Weight: 57.6 kg

DRUGS (15)
  1. DELFLEX WITH DEXTROSE 4.25% LOW MAGNESIUM LOW CALCIUM [Suspect]
     Active Substance: CALCIUM CHLORIDE\DEXTROSE\MAGNESIUM CHLORIDE\SODIUM CHLORIDE\SODIUM LACTATE
     Indication: END STAGE RENAL DISEASE
     Dosage: FILL VOLUME = 1300 ML, DWELL 6 HOURS, 3 EXCHANGES, LAST FILL  300 ML, NO DAYTIME EXCHANGE
     Route: 033
     Dates: start: 20190423
  2. DELFLEX WITH DEXTROSE 1.5% LOW MAGNESIUM LOW CALCIUM [Suspect]
     Active Substance: CALCIUM CHLORIDE\DEXTROSE\MAGNESIUM CHLORIDE\SODIUM CHLORIDE\SODIUM LACTATE
     Indication: END STAGE RENAL DISEASE
     Dosage: FILL VOLUME = 1300 ML, DWELL 6 HOURS, 3 EXCHANGES, LAST FILL  300 ML, NO DAYTIME EXCHANGE
     Route: 033
     Dates: start: 20190423
  3. CLONIDINE. [Concomitant]
     Active Substance: CLONIDINE
  4. COLACE [Concomitant]
     Active Substance: DOCUSATE SODIUM
  5. TORSEMIDE. [Concomitant]
     Active Substance: TORSEMIDE
  6. RANITIDINE. [Concomitant]
     Active Substance: RANITIDINE
  7. MUPIROCIN. [Concomitant]
     Active Substance: MUPIROCIN
  8. ELIQUIS [Concomitant]
     Active Substance: APIXABAN
  9. VITAMIN D3 [Concomitant]
     Active Substance: CHOLECALCIFEROL
  10. DELFLEX WITH DEXTROSE 2.5% LOW MAGNESIUM LOW CALCIUM [Suspect]
     Active Substance: CALCIUM CHLORIDE\DEXTROSE\MAGNESIUM CHLORIDE\SODIUM CHLORIDE\SODIUM LACTATE
     Indication: END STAGE RENAL DISEASE
     Dosage: FILL VOLUME = 1300 ML, DWELL 6 HOURS, 3 EXCHANGES, LAST FILL  300 ML, NO DAYTIME EXCHANGE
     Route: 033
     Dates: start: 20190423
  11. PROLIA [Concomitant]
     Active Substance: DENOSUMAB
  12. RENAVITE [Concomitant]
     Active Substance: ASCORBIC ACID\BIOTIN\CALCIUM PANTOTHENATE\CYANOCOBALAMIN\FOLIC ACID\NIACINAMIDE\PYRIDOXINE HYDROCHLORIDE\RIBOFLAVIN\THIAMINE MONONITRATE
  13. ALLOPURINOL. [Concomitant]
     Active Substance: ALLOPURINOL
  14. TYLENOL [Concomitant]
     Active Substance: ACETAMINOPHEN
  15. ATORVASTATIN [Concomitant]
     Active Substance: ATORVASTATIN

REACTIONS (1)
  - Haematuria [Unknown]
